APPROVED DRUG PRODUCT: METHOCARBAMOL
Active Ingredient: METHOCARBAMOL
Strength: 750MG
Dosage Form/Route: TABLET;ORAL
Application: A088647 | Product #001
Applicant: ROXANE LABORATORIES INC
Approved: Feb 29, 1984 | RLD: No | RS: No | Type: DISCN